FAERS Safety Report 7967123-1 (Version None)
Quarter: 2011Q4

REPORT INFORMATION
  Report Type: 
  Country: None (occurrence: None)
  Receive Date: 20111208
  Receipt Date: 20111208
  Transmission Date: 20120403
  Serious: Yes (Hospitalization)
  Sender: FDA-Public Use
  Company Number: None

PATIENT
  Age: 66 Year
  Sex: Male
  Weight: 107.9 kg

DRUGS (5)
  1. EVEROLIMUS (RAD-001) [Suspect]
     Indication: MANTLE CELL LYMPHOMA
     Dosage: 5MG 1 PILL ONLY
     Dates: start: 20111011
  2. BORTEZOMIB [Suspect]
     Indication: MANTLE CELL LYMPHOMA
     Dosage: 2.96 MG IVP ON D1,4,8,11
     Route: 042
     Dates: start: 20111202
  3. BORTEZOMIB [Suspect]
     Indication: MANTLE CELL LYMPHOMA
     Dosage: 2.96 MG IVP ON D1,4,8,11
     Route: 042
     Dates: start: 20111125
  4. BORTEZOMIB [Suspect]
     Indication: MANTLE CELL LYMPHOMA
     Dosage: 2.96 MG IVP ON D1,4,8,11
     Route: 042
     Dates: start: 20111122
  5. BORTEZOMIB [Suspect]
     Indication: MANTLE CELL LYMPHOMA
     Dosage: 2.96 MG IVP ON D1,4,8,11
     Route: 042
     Dates: start: 20111129

REACTIONS (4)
  - DYSPNOEA [None]
  - PNEUMONIA [None]
  - DIZZINESS [None]
  - FATIGUE [None]
